FAERS Safety Report 10102286 (Version 2)
Quarter: 2014Q2

REPORT INFORMATION
  Report Type: Spontaneous
  Country: US (occurrence: US)
  Receive Date: 20140424
  Receipt Date: 20140527
  Transmission Date: 20141212
  Serious: No
  Sender: FDA-Public Use
  Company Number: US-009507513-1404USA012640

PATIENT
  Age: 63 Year
  Sex: Female
  Weight: 63.95 kg

DRUGS (12)
  1. CLARITIN-D-24 [Suspect]
     Indication: RHINORRHOEA
     Dosage: 10 MG, QD
     Route: 048
     Dates: start: 201404
  2. CLARITIN-D-24 [Suspect]
     Indication: HYPERSENSITIVITY
  3. CLARITIN-D-24 [Suspect]
     Indication: LACRIMATION INCREASED
  4. SIMVASTATIN [Concomitant]
     Indication: BLOOD CHOLESTEROL
     Dosage: 20 MG, UNKNOWN
  5. COZAAR [Concomitant]
     Indication: BLOOD PRESSURE
     Dosage: 50 MG, UNKNOWN
  6. EFFEXOR XR [Concomitant]
     Indication: DEPRESSION
     Dosage: 150 MG, UNKNOWN
  7. BAYER ASPIRIN [Concomitant]
     Indication: PRODUCT USED FOR UNKNOWN INDICATION
     Dosage: UNK, UNKNOWN
  8. ULTRAM [Concomitant]
     Indication: PAIN
     Dosage: 50 MG, UNKNOWN
  9. LEVOTHYROXINE SODIUM [Concomitant]
     Indication: THYROID DISORDER
     Dosage: UNK, UNKNOWN
  10. CHOLECALCIFEROL [Concomitant]
     Indication: PRODUCT USED FOR UNKNOWN INDICATION
     Dosage: 1000 IU, UNKNOWN
  11. CVS SPECTRAVITE TABLETS [Concomitant]
     Indication: PRODUCT USED FOR UNKNOWN INDICATION
     Dosage: UNK, UNKNOWN
  12. MELOXICAM [Concomitant]
     Indication: PRODUCT USED FOR UNKNOWN INDICATION
     Dosage: 7.5 MG, UNKNOWN

REACTIONS (1)
  - Drug ineffective [Unknown]
